FAERS Safety Report 5192443-6 (Version None)
Quarter: 2006Q4

REPORT INFORMATION
  Report Type: 
  Country: None (occurrence: None)
  Receive Date: 20061220
  Receipt Date: 20061207
  Transmission Date: 20070319
  Serious: Yes (Other)
  Sender: FDA-Public Use
  Company Number: 2006152155

PATIENT
  Age: 34 Year
  Sex: Female

DRUGS (4)
  1. DEPO-PROVERA [Suspect]
     Dosage: (FIRST INJECTION), INTRAMUSCULAR
     Route: 042
     Dates: start: 19940101, end: 19940101
  2. DEPO-PROVERA [Suspect]
     Dosage: (FIRST INJECTION), INTRAMUSCULAR
     Route: 042
     Dates: start: 19960701, end: 19960701
  3. DEPO-PROVERA [Suspect]
     Dosage: (FIRST INJECTION), INTRAMUSCULAR
     Route: 042
     Dates: start: 19980701, end: 19980701
  4. DEPO-PROVERA [Suspect]
     Dosage: (FIRST INJECTION), INTRAMUSCULAR
     Route: 042
     Dates: start: 20010101, end: 20010101

REACTIONS (5)
  - FOOT FRACTURE [None]
  - HAND FRACTURE [None]
  - OSTEOPOROSIS [None]
  - SPINAL FRACTURE [None]
  - THORACIC VERTEBRAL FRACTURE [None]
